FAERS Safety Report 5042988-4 (Version None)
Quarter: 2006Q2

REPORT INFORMATION
  Report Type: 
  Country: None (occurrence: None)
  Receive Date: 20060627
  Receipt Date: 20060616
  Transmission Date: 20061013
  Serious: Yes (Disabling)
  Sender: FDA-Public Use
  Company Number: 2006077626

PATIENT
  Age: 84 Year
  Sex: Male

DRUGS (15)
  1. LYRICA [Suspect]
     Indication: NEURALGIA
     Dosage: 300 MG (1 IN 1 D), ORAL
     Route: 048
     Dates: start: 20050614, end: 20060313
  2. COZAAR [Concomitant]
  3. ALLPURINOL (ALLOPURINOL) [Concomitant]
  4. NITROMEX (GLYCERYL TRINITRATE) [Concomitant]
  5. DIGOXIN [Concomitant]
  6. WARFARIN SODIUM [Concomitant]
  7. KALITABS (POTASSIUM CHLORIDE) [Concomitant]
  8. PHENYOXYMETHYLPRENICILLIN POTASSIUM (PHENOXYMETHYLPENICILLIN POTASSIUM [Concomitant]
  9. TENORMIN [Concomitant]
  10. FUROSEMIDE [Concomitant]
  11. HERACILLIN (FLUCLOXACILLIN SODIUM) [Concomitant]
  12. BETOLVEX (CYANOCOBALAMIN-TANNIN COMPLEX) [Concomitant]
  13. SORBANGIL (ISOSORBIDE DINITRATE) [Concomitant]
  14. ZOCORD (SIMVASTATIN) [Concomitant]
  15. SPIRONOLACTONE [Concomitant]

REACTIONS (2)
  - LOCALISED INFECTION [None]
  - PRESBYACUSIS [None]
